FAERS Safety Report 5574963-5 (Version None)
Quarter: 2007Q4

REPORT INFORMATION
  Report Type: 
  Country: None (occurrence: None)
  Receive Date: 20071227
  Receipt Date: 20071221
  Transmission Date: 20080405
  Serious: Yes (Hospitalization, Other)
  Sender: FDA-Public Use
  Company Number: B0498662A

PATIENT
  Age: 31 Year
  Sex: Female

DRUGS (8)
  1. PAXIL [Suspect]
     Indication: BIPOLAR DISORDER
     Dosage: 10MG PER DAY
     Route: 048
     Dates: start: 20050302, end: 20050313
  2. CARBAMAZEPINE [Suspect]
     Indication: BIPOLAR DISORDER
     Dosage: 200MG PER DAY
     Route: 048
     Dates: start: 20050302, end: 20050313
  3. U PAN [Concomitant]
     Indication: BIPOLAR DISORDER
     Dosage: 1MG PER DAY
     Route: 048
     Dates: start: 20050302, end: 20050308
  4. U PAN [Concomitant]
     Dosage: 1MG PER DAY
     Route: 048
     Dates: start: 20070314
  5. RESTAS [Concomitant]
     Indication: BIPOLAR DISORDER
     Dosage: 2MG PER DAY
     Route: 048
     Dates: start: 20050309, end: 20050313
  6. CHLORPHENAMINE [Concomitant]
  7. DEPAKENE [Concomitant]
  8. SOLANAX [Concomitant]

REACTIONS (3)
  - LIVER DISORDER [None]
  - RASH GENERALISED [None]
  - STEVENS-JOHNSON SYNDROME [None]
